FAERS Safety Report 6919756-9 (Version None)
Quarter: 2010Q3

REPORT INFORMATION
  Report Type: 
  Country: None (occurrence: None)
  Receive Date: 20100811
  Receipt Date: 20100728
  Transmission Date: 20110219
  Serious: Yes (Hospitalization, Other)
  Sender: FDA-Public Use
  Company Number: US-ELI_LILLY_AND_COMPANY-US201008002240

PATIENT
  Sex: Female

DRUGS (7)
  1. FORTEO [Suspect]
     Indication: OSTEOPOROSIS
     Dosage: 20 UG, DAILY (1/D)
  2. LAMICTAL [Concomitant]
  3. PRILOSEC [Concomitant]
  4. ATIVAN [Concomitant]
  5. PROZAC [Concomitant]
  6. VITAMIN TAB [Concomitant]
  7. IRON [Concomitant]

REACTIONS (2)
  - LOSS OF CONSCIOUSNESS [None]
  - UNRESPONSIVE TO STIMULI [None]
